FAERS Safety Report 15211667 (Version 1)
Quarter: 2018Q3

REPORT INFORMATION
  Report Type: Spontaneous
  Country: DE (occurrence: DE)
  Receive Date: 20180729
  Receipt Date: 20180729
  Transmission Date: 20181010
  Serious: Yes (Hospitalization, Other)
  Sender: FDA-Public Use
  Company Number: PHHY2018DE024079

PATIENT
  Sex: Female

DRUGS (1)
  1. ENTRESTO [Suspect]
     Active Substance: SACUBITRIL\VALSARTAN
     Indication: CARDIAC FAILURE
     Dosage: 1 DF, (49/51) BID
     Route: 065
     Dates: start: 2017, end: 201806

REACTIONS (2)
  - Renal failure [Recovered/Resolved]
  - Ovarian cancer [Unknown]

NARRATIVE: CASE EVENT DATE: 2018
